FAERS Safety Report 22078398 (Version 1)
Quarter: 2023Q1

REPORT INFORMATION
  Report Type: Spontaneous
  Country: US (occurrence: US)
  Receive Date: 20230309
  Receipt Date: 20230309
  Transmission Date: 20230418
  Serious: No
  Sender: FDA-Public Use
  Company Number: US-SA-SAC20230307000183

PATIENT
  Age: 58 Year
  Sex: Female
  Weight: 83 kg

DRUGS (14)
  1. AUBAGIO [Suspect]
     Active Substance: TERIFLUNOMIDE
     Indication: Multiple sclerosis
     Dosage: 14 MG; QD
     Route: 048
  2. METHYLPREDNISOLONE [Concomitant]
     Active Substance: METHYLPREDNISOLONE
  3. MEDROL [Concomitant]
     Active Substance: METHYLPREDNISOLONE
  4. ASPIRIN [Concomitant]
     Active Substance: ASPIRIN
  5. DUREZOL [Concomitant]
     Active Substance: DIFLUPREDNATE
  6. SYMBICORT [Concomitant]
     Active Substance: BUDESONIDE\FORMOTEROL FUMARATE DIHYDRATE
  7. LISINOPRIL [Concomitant]
     Active Substance: LISINOPRIL
  8. METOPROLOL TARTRATE [Concomitant]
     Active Substance: METOPROLOL TARTRATE
  9. VITAMIN D3 [Concomitant]
     Active Substance: CHOLECALCIFEROL
  10. VITAMIN B12 [Concomitant]
     Active Substance: CYANOCOBALAMIN
  11. GABAPENTIN [Concomitant]
     Active Substance: GABAPENTIN
  12. METHOTREXATE [Concomitant]
     Active Substance: METHOTREXATE
  13. CENTRUM [CYTIDINE;URIDINE] [Concomitant]
  14. FERASUL [Concomitant]

REACTIONS (1)
  - Intraocular lens implant [Unknown]
